FAERS Safety Report 23048525 (Version 3)
Quarter: 2023Q4

REPORT INFORMATION
  Report Type: Spontaneous
  Country: JP (occurrence: JP)
  Receive Date: 20231010
  Receipt Date: 20231124
  Transmission Date: 20240110
  Serious: Yes (Other)
  Sender: FDA-Public Use
  Company Number: JP-BAXTER-2023BAX032582

PATIENT
  Age: 78 Year
  Sex: Female

DRUGS (1)
  1. DOXIL [Suspect]
     Active Substance: DOXORUBICIN HYDROCHLORIDE
     Indication: Ovarian epithelial cancer
     Dosage: PEGYLATED LIPOSOMAL DOXORUBICIN (DOXIL 20MG), (40 OR 50 MG/M2 PER INFUSION INTRAVENOUS (VIA A CENTRA
     Route: 041
     Dates: start: 20161021, end: 20220311

REACTIONS (6)
  - Thrombotic microangiopathy [Recovering/Resolving]
  - Hypertension [Unknown]
  - Proteinuria [Recovering/Resolving]
  - Renal impairment [Recovering/Resolving]
  - Oedema peripheral [Unknown]
  - Chronic kidney disease [Unknown]

NARRATIVE: CASE EVENT DATE: 20211101
